FAERS Safety Report 17743157 (Version 1)
Quarter: 2020Q2

REPORT INFORMATION
  Report Type: Spontaneous
  Country: US (occurrence: US)
  Receive Date: 20200505
  Receipt Date: 20200505
  Transmission Date: 20200714
  Serious: No
  Sender: FDA-Public Use
  Company Number: US-ROCHE-2398133

PATIENT
  Sex: Female

DRUGS (1)
  1. ESBRIET [Suspect]
     Active Substance: PIRFENIDONE
     Indication: IDIOPATHIC PULMONARY FIBROSIS
     Route: 048
     Dates: start: 20190624

REACTIONS (7)
  - Fatigue [Unknown]
  - Headache [Unknown]
  - Rash [Unknown]
  - Oropharyngeal pain [Unknown]
  - Tremor [Unknown]
  - Laryngitis [Unknown]
  - Throat irritation [Unknown]
